FAERS Safety Report 9733054 (Version 2)
Quarter: 2013Q4

REPORT INFORMATION
  Report Type: Spontaneous
  Country: US (occurrence: US)
  Receive Date: 20131204
  Receipt Date: 20131204
  Transmission Date: 20140711
  Serious: No
  Sender: FDA-Public Use
  Company Number: US-GILEAD-2009-0021958

PATIENT
  Sex: Female
  Weight: 48.53 kg

DRUGS (10)
  1. LETAIRIS [Suspect]
     Indication: PULMONARY ARTERIAL HYPERTENSION
     Route: 048
     Dates: start: 20090125
  2. LETAIRIS [Suspect]
     Route: 048
     Dates: start: 20090125
  3. COUMADIN [Concomitant]
  4. ASPIRIN [Concomitant]
  5. LASIX [Concomitant]
  6. LISINOPRIL [Concomitant]
  7. SIMVASTATIN [Concomitant]
  8. PAXIL [Concomitant]
  9. LORAZEPAM [Concomitant]
  10. AMBIEN CR [Concomitant]

REACTIONS (1)
  - Liver function test abnormal [Unknown]
